FAERS Safety Report 6991987-1 (Version None)
Quarter: 2010Q3

REPORT INFORMATION
  Report Type: 
  Country: None (occurrence: None)
  Receive Date: 20100917
  Receipt Date: 20100908
  Transmission Date: 20110219
  Serious: Yes (Other)
  Sender: FDA-Public Use
  Company Number: MX-GENZYME-CERZ-1001423

PATIENT

DRUGS (1)
  1. CEREZYME [Suspect]
     Indication: GAUCHER'S DISEASE
     Dosage: 60 U/KG, UNK
     Route: 042
     Dates: start: 20051001, end: 20100730

REACTIONS (6)
  - ANAPHYLACTIC REACTION [None]
  - HEADACHE [None]
  - HYPOTENSION [None]
  - MALAISE [None]
  - NAUSEA [None]
  - PARAESTHESIA [None]
